FAERS Safety Report 8844998 (Version 2)
Quarter: 2012Q4

REPORT INFORMATION
  Report Type: 
  Country: US (occurrence: US)
  Receive Date: 20121017
  Receipt Date: 20121025
  Transmission Date: 20130627
  Serious: No
  Sender: FDA-Public Use
  Company Number: US-009507513-1210USA007014

PATIENT

DRUGS (1)
  1. JANUMET XR [Suspect]
     Indication: DIABETES MELLITUS
     Route: 048

REACTIONS (1)
  - Headache [Unknown]
